FAERS Safety Report 5853932-1 (Version None)
Quarter: 2008Q3

REPORT INFORMATION
  Report Type: 
  Country: None (occurrence: None)
  Receive Date: 20080822
  Receipt Date: 20080820
  Transmission Date: 20090109
  Serious: Yes (Other)
  Sender: FDA-Public Use
  Company Number: B0361135A

PATIENT
  Age: 22 Year
  Sex: Female

DRUGS (1)
  1. PAROXETINE HCL [Suspect]
     Route: 065
     Dates: start: 19990803

REACTIONS (11)
  - ABNORMAL DREAMS [None]
  - AGGRESSION [None]
  - ANGER [None]
  - DEPRESSION [None]
  - DRUG EXPOSURE DURING PREGNANCY [None]
  - DRUG WITHDRAWAL SYNDROME [None]
  - FATIGUE [None]
  - NAUSEA [None]
  - NIGHTMARE [None]
  - RASH MACULAR [None]
  - SOMNOLENCE [None]
